FAERS Safety Report 5598820-3 (Version None)
Quarter: 2008Q1

REPORT INFORMATION
  Report Type: 
  Country: None (occurrence: None)
  Receive Date: 20080122
  Receipt Date: 20080114
  Transmission Date: 20080703
  Serious: Yes (Hospitalization)
  Sender: FDA-Public Use
  Company Number: US-ELI_LILLY_AND_COMPANY-US200801003003

PATIENT
  Sex: Female

DRUGS (4)
  1. FORTEO [Suspect]
     Dosage: UNK, UNK
     Dates: start: 20070301
  2. SYNTHROID [Concomitant]
  3. ALEVE [Concomitant]
     Indication: ARTHRITIS
     Dates: end: 20080101
  4. TRIAMTERENE [Concomitant]

REACTIONS (7)
  - ARTHROPATHY [None]
  - BACK DISORDER [None]
  - BACK PAIN [None]
  - GAIT DISTURBANCE [None]
  - SKIN DISCOLOURATION [None]
  - SPINAL FRACTURE [None]
  - SURGERY [None]
